FAERS Safety Report 9025538 (Version 1)
Quarter: 2013Q1

REPORT INFORMATION
  Report Type: Report from Study
  Country: DE (occurrence: DE)
  Receive Date: 20130122
  Receipt Date: 20130122
  Transmission Date: 20140127
  Serious: Yes (Hospitalization)
  Sender: FDA-Public Use
  Company Number: DE-ROCHE-1181939

PATIENT
  Sex: Male
  Weight: 103 kg

DRUGS (6)
  1. RITUXIMAB [Suspect]
     Indication: RHEUMATOID ARTHRITIS
     Route: 065
     Dates: start: 20110126
  2. METHOTREXATE [Suspect]
     Indication: RHEUMATOID ARTHRITIS
     Route: 048
     Dates: start: 201011, end: 201109
  3. METHOTREXATE [Suspect]
     Route: 048
     Dates: start: 20111015
  4. DECORTIN [Concomitant]
     Indication: RHEUMATOID ARTHRITIS
     Route: 065
  5. HYDROXYCHLOROQUINE [Concomitant]
     Route: 065
     Dates: start: 201103
  6. MARCUMAR [Concomitant]
     Indication: ATRIAL FIBRILLATION

REACTIONS (1)
  - Bladder transitional cell carcinoma [Recovered/Resolved]
